FAERS Safety Report 15471572 (Version 3)
Quarter: 2018Q4

REPORT INFORMATION
  Report Type: Spontaneous
  Country: US (occurrence: US)
  Receive Date: 20181007
  Receipt Date: 20181122
  Transmission Date: 20190205
  Serious: Yes (Hospitalization)
  Sender: FDA-Public Use
  Company Number: US-ASTRAZENECA-2018SF23548

PATIENT
  Age: 631 Month
  Sex: Female
  Weight: 115.7 kg

DRUGS (1)
  1. BYDUREON [Suspect]
     Active Substance: EXENATIDE
     Indication: TYPE 2 DIABETES MELLITUS
     Route: 058
     Dates: start: 201809

REACTIONS (6)
  - Injection site irritation [Not Recovered/Not Resolved]
  - Injection site erythema [Not Recovered/Not Resolved]
  - Injection site pain [Unknown]
  - Gastric disorder [Unknown]
  - Injection site nodule [Not Recovered/Not Resolved]
  - Injection site swelling [Unknown]

NARRATIVE: CASE EVENT DATE: 201809
